FAERS Safety Report 4491903-0 (Version None)
Quarter: 2004Q4

REPORT INFORMATION
  Report Type: 
  Country: None (occurrence: None)
  Receive Date: 20041029
  Receipt Date: 20041029
  Transmission Date: 20050328
  Serious: Yes (Hospitalization)
  Sender: FDA-Public Use
  Company Number: None

PATIENT
  Age: 58 Year
  Sex: Female

DRUGS (2)
  1. CISPLATIN [Suspect]
     Indication: ENDOMETRIAL CANCER
     Dosage: 85 MG   DAY 1, CYCLE 5   INTRAVENOU
     Route: 042
     Dates: start: 20040319, end: 20040319
  2. DOXORUBICIN HCL [Suspect]
     Dosage: 85 MG   DAY 1, CYCLE 5   INTRAVENOU
     Route: 042

REACTIONS (2)
  - BONE MARROW DEPRESSION [None]
  - PANCYTOPENIA [None]
